FAERS Safety Report 19276824 (Version 3)
Quarter: 2021Q2

REPORT INFORMATION
  Report Type: Spontaneous
  Country: ZA (occurrence: ZA)
  Receive Date: 20210519
  Receipt Date: 20210601
  Transmission Date: 20210717
  Serious: Yes (Hospitalization, Other)
  Sender: FDA-Public Use
  Company Number: ZA-TAKEDA-2021TUS031801

PATIENT
  Sex: Male

DRUGS (5)
  1. OXYLIN [Concomitant]
     Indication: PRODUCT USED FOR UNKNOWN INDICATION
     Dosage: 1 GTT DROPS
     Route: 047
  2. ILIADIN [Concomitant]
     Indication: PRODUCT USED FOR UNKNOWN INDICATION
     Dosage: UNK
     Route: 045
  3. BRINTELLIX [Suspect]
     Active Substance: VORTIOXETINE HYDROBROMIDE
     Indication: ANXIETY
     Dosage: 5 MILLIGRAM
     Route: 065
     Dates: start: 20210413, end: 20210417
  4. BISOPROLOL FUMARATE HYDROCHLOROTHIAZIDE [Concomitant]
     Active Substance: BISOPROLOL FUMARATE\HYDROCHLOROTHIAZIDE
     Indication: HYPERTENSION
     Dosage: UNK
     Route: 065
  5. OPTIVE FUSION [Concomitant]
     Indication: PRODUCT USED FOR UNKNOWN INDICATION
     Dosage: UNK
     Route: 065

REACTIONS (25)
  - Intracranial pressure increased [Recovering/Resolving]
  - Anxiety [Recovering/Resolving]
  - Depression [Recovering/Resolving]
  - Glaucoma [Not Recovered/Not Resolved]
  - Condition aggravated [Unknown]
  - Abnormal dreams [Recovering/Resolving]
  - Seizure [Unknown]
  - Fatigue [Recovering/Resolving]
  - Ocular hypertension [Not Recovered/Not Resolved]
  - Memory impairment [Recovering/Resolving]
  - Eyelid margin crusting [Unknown]
  - Headache [Recovering/Resolving]
  - Pollakiuria [Recovering/Resolving]
  - Trance [Recovering/Resolving]
  - Decreased appetite [Recovering/Resolving]
  - Antidepressant discontinuation syndrome [Unknown]
  - Product use in unapproved indication [Unknown]
  - Ocular hyperaemia [Not Recovered/Not Resolved]
  - Intraocular pressure increased [Unknown]
  - Irritability [Recovering/Resolving]
  - Brain neoplasm [Unknown]
  - Sleep disorder [Recovering/Resolving]
  - Irritable bowel syndrome [Recovering/Resolving]
  - Serotonin syndrome [Unknown]
  - Vision blurred [Not Recovered/Not Resolved]

NARRATIVE: CASE EVENT DATE: 20210413
